FAERS Safety Report 4660853-9 (Version None)
Quarter: 2005Q2

REPORT INFORMATION
  Report Type: 
  Country: None (occurrence: None)
  Receive Date: 20050426
  Receipt Date: 20040809
  Transmission Date: 20051028
  Serious: Yes (Other)
  Sender: FDA-Public Use
  Company Number: 24876

PATIENT
  Age: 60 Year
  Sex: Female

DRUGS (2)
  1. ALDARA [Suspect]
     Indication: CONDYLOMA ACUMINATUM
     Dosage: (3 IN 1 WEEK(S)), TOPICAL
     Route: 061
     Dates: start: 20050625, end: 20040802
  2. ZOLOFT [Suspect]

REACTIONS (4)
  - CLOSTRIDIUM COLITIS [None]
  - DIARRHOEA [None]
  - MALAISE [None]
  - WEIGHT DECREASED [None]
